FAERS Safety Report 5817791-5 (Version None)
Quarter: 2008Q3

REPORT INFORMATION
  Report Type: 
  Country: None (occurrence: None)
  Receive Date: 20080722
  Receipt Date: 20080711
  Transmission Date: 20090109
  Serious: Yes (Other)
  Sender: FDA-Public Use
  Company Number: US-ROCHE-512820

PATIENT
  Sex: Male
  Weight: 67.1 kg

DRUGS (3)
  1. ACCUTANE [Suspect]
     Route: 048
     Dates: start: 20010802, end: 20011002
  2. ACCUTANE [Suspect]
     Route: 048
     Dates: start: 20011002, end: 20011102
  3. CLARITIN [Concomitant]
     Indication: SEASONAL ALLERGY

REACTIONS (12)
  - ANAL FISTULA [None]
  - ANXIETY [None]
  - ARTHRALGIA [None]
  - CROHN'S DISEASE [None]
  - DEPRESSION [None]
  - INFLAMMATORY BOWEL DISEASE [None]
  - MOOD SWINGS [None]
  - OESOPHAGITIS [None]
  - PERIRECTAL ABSCESS [None]
  - SUICIDAL IDEATION [None]
  - SUICIDE ATTEMPT [None]
  - TINEA INFECTION [None]
